FAERS Safety Report 4471613-6 (Version None)
Quarter: 2004Q4

REPORT INFORMATION
  Report Type: 
  Country: None (occurrence: None)
  Receive Date: 20041012
  Receipt Date: 20041001
  Transmission Date: 20050328
  Serious: Yes (Hospitalization)
  Sender: FDA-Public Use
  Company Number: JP-JNJFOC-20040604343

PATIENT
  Sex: Male

DRUGS (7)
  1. ITRIZOLE [Suspect]
     Indication: ONYCHOMYCOSIS
     Route: 049
     Dates: start: 20040304, end: 20040516
  2. TICLOPIDINE HCL [Concomitant]
     Route: 049
  3. NILVADIPINE [Concomitant]
     Route: 049
  4. TEPRENONE [Concomitant]
     Route: 049
  5. ASPIRIN [Concomitant]
     Route: 049
  6. OLOPATADINE HYDROCHLORIDE [Concomitant]
     Route: 049
  7. VALACYCLOVIR HCL [Concomitant]
     Route: 049

REACTIONS (8)
  - ERYTHEMA MULTIFORME [None]
  - HERPES ZOSTER [None]
  - IDIOPATHIC THROMBOCYTOPENIC PURPURA [None]
  - MALAISE [None]
  - PYREXIA [None]
  - THERAPY NON-RESPONDER [None]
  - THROMBOCYTOPENIA [None]
  - VIRAL INFECTION [None]
